FAERS Safety Report 4825648-1 (Version None)
Quarter: 2005Q4

REPORT INFORMATION
  Report Type: 
  Country: None (occurrence: None)
  Receive Date: 20051111
  Receipt Date: 20051102
  Transmission Date: 20060501
  Serious: Yes (Hospitalization)
  Sender: FDA-Public Use
  Company Number: US-MERCK-0511USA00553

PATIENT
  Age: 16 Year
  Sex: Female

DRUGS (6)
  1. DECADRON [Suspect]
     Indication: BONE SARCOMA
     Route: 048
  2. ONDANSETRON [Suspect]
     Indication: BONE SARCOMA
     Route: 041
  3. CISPLATIN [Suspect]
     Indication: BONE SARCOMA
     Route: 065
  4. DOXORUBICIN [Suspect]
     Indication: BONE SARCOMA
     Route: 065
  5. LORAZEPAM [Concomitant]
     Route: 065
  6. DIPHENHYDRAMINE HYDROCHLORIDE [Concomitant]
     Route: 065

REACTIONS (4)
  - DEHYDRATION [None]
  - DRUG INEFFECTIVE [None]
  - NAUSEA [None]
  - VOMITING [None]
